FAERS Safety Report 7630155-7 (Version None)
Quarter: 2011Q3

REPORT INFORMATION
  Report Type: 
  Country: None (occurrence: None)
  Receive Date: 20110722
  Receipt Date: 20110712
  Transmission Date: 20111222
  Serious: Yes (Hospitalization, Congenital Anomaly, Other)
  Sender: FDA-Public Use
  Company Number: US-PFIZER INC-2011159382

PATIENT
  Sex: Female
  Weight: 2.7 kg

DRUGS (1)
  1. ZOLOFT [Suspect]
     Indication: ANXIETY
     Dosage: UNK
     Route: 064

REACTIONS (3)
  - CONGENITAL SPINAL CORD ANOMALY [None]
  - NEURAL TUBE DEFECT [None]
  - MATERNAL EXPOSURE DURING PREGNANCY [None]
